FAERS Safety Report 8170741-1 (Version None)
Quarter: 2012Q1

REPORT INFORMATION
  Report Type: 
  Country: None (occurrence: None)
  Receive Date: 20120104
  Receipt Date: 20111116
  Transmission Date: 20120608
  Serious: No
  Sender: FDA-Public Use
  Company Number: 2011HGS-002814

PATIENT
  Age: 28 Year
  Sex: Female
  Weight: 99.7913 kg

DRUGS (12)
  1. AMITRIPTYLINE HCL [Concomitant]
  2. MELOXICAM [Concomitant]
  3. GABAPENTIN [Concomitant]
  4. PLAQUENIL [Concomitant]
  5. NEXIUM [Concomitant]
  6. LIDODERM [Concomitant]
  7. BACLOFEN [Concomitant]
  8. BENLYSTA [Suspect]
     Indication: SYSTEMIC LUPUS ERYTHEMATOSUS
     Dosage: 1 IN 28 D, INTRAVENOUS DRIP
     Route: 041
     Dates: start: 20110413
  9. CELLCEPT [Concomitant]
  10. XANAX [Concomitant]
  11. ASPIRIN [Concomitant]
  12. CALCIUM WITH VITAMIN D (CALCIUM WITH VITAMIN D) [Concomitant]

REACTIONS (4)
  - FATIGUE [None]
  - UMBILICAL HERNIA [None]
  - SYSTEMIC LUPUS ERYTHEMATOSUS [None]
  - PAIN [None]
